FAERS Safety Report 16927727 (Version 4)
Quarter: 2019Q4

REPORT INFORMATION
  Report Type: Report from Study
  Country: None (occurrence: FR)
  Receive Date: 20191016
  Receipt Date: 20191213
  Transmission Date: 20200122
  Serious: Yes (Hospitalization)
  Sender: FDA-Public Use
  Company Number: FR-ABBVIE-19K-056-2964223-00

PATIENT
  Age: 84 Year
  Sex: Female

DRUGS (1)
  1. DUODOPA [Suspect]
     Active Substance: CARBIDOPA\LEVODOPA
     Indication: PARKINSON^S DISEASE
     Route: 050
     Dates: start: 201702

REACTIONS (4)
  - Stoma complication [Unknown]
  - Stoma site inflammation [Recovering/Resolving]
  - Stoma site induration [Unknown]
  - Medical device site abscess [Recovering/Resolving]

NARRATIVE: CASE EVENT DATE: 20191012
